FAERS Safety Report 8775935 (Version 3)
Quarter: 2013Q1

REPORT INFORMATION
  Report Type: Report from Study
  Country: CA (occurrence: CA)
  Receive Date: 20120910
  Receipt Date: 20130115
  Transmission Date: 20140127
  Serious: Yes (Other)
  Sender: FDA-Public Use
  Company Number: CA-ROCHE-1091931

PATIENT
  Age: 47 Year
  Sex: Female
  Weight: 51 kg

DRUGS (7)
  1. BEVACIZUMAB [Suspect]
     Indication: OVARIAN CANCER
     Route: 042
     Dates: start: 20120606
  2. BEVACIZUMAB [Suspect]
     Route: 042
     Dates: start: 20120726
  3. HYDROMORPHONE [Concomitant]
  4. VENLAFAXINE [Concomitant]
  5. COLACE [Concomitant]
  6. SENOKOT [Concomitant]
  7. RABEPRAZOLE [Concomitant]

REACTIONS (8)
  - Hypertension [Recovering/Resolving]
  - Weight decreased [Not Recovered/Not Resolved]
  - Dehydration [Unknown]
  - Fatigue [Not Recovered/Not Resolved]
  - Vomiting [Recovered/Resolved]
  - Nausea [Recovered/Resolved]
  - Disease progression [Not Recovered/Not Resolved]
  - Ascites [Unknown]
